FAERS Safety Report 9395742 (Version 1)
Quarter: 2013Q3

REPORT INFORMATION
  Report Type: Spontaneous
  Country: US (occurrence: US)
  Receive Date: 20130711
  Receipt Date: 20130711
  Transmission Date: 20140515
  Serious: No
  Sender: FDA-Public Use
  Company Number: US-COVIDIEN/TYCO HEALTHCARE/MALLINCKRODT-T201302329

PATIENT
  Age: 50 Year
  Sex: Female
  Weight: 70.3 kg

DRUGS (10)
  1. OXYCODONE/ACETAMINOPHEN [Suspect]
     Indication: PAIN
     Dosage: Q 4-8 HRS PRN
     Route: 048
  2. TRAMADOL [Concomitant]
     Indication: PAIN
     Dosage: 50 MG, QID
     Route: 048
  3. ATACAND [Concomitant]
     Indication: HYPERTENSION
     Dosage: 32 MG, 1/2 TAB. QD
     Route: 048
  4. BYSTOLIC [Concomitant]
     Indication: HYPERTENSION
     Dosage: 2.5 MG, UNK
     Route: 048
     Dates: start: 20130419
  5. PHENERGAN                          /00033001/ [Concomitant]
     Indication: MIGRAINE
     Dosage: UNK, PRN
     Route: 048
  6. RESTORIL                           /00393701/ [Concomitant]
     Indication: INSOMNIA
     Dosage: 30 MG, UNK
     Route: 048
  7. PREMARIN [Concomitant]
     Indication: HORMONE REPLACEMENT THERAPY
     Dosage: 0.9 MG, QD
     Route: 048
  8. VIT B 12 [Concomitant]
     Indication: VITAMIN B12 DEFICIENCY
     Dosage: UNK, 1XWKLY
     Route: 030
     Dates: start: 20130419
  9. CYCLOBENZAPRINE [Concomitant]
     Indication: MUSCLE RELAXANT THERAPY
     Dosage: 10 MG, BID, PRN
     Route: 048
  10. DIAZEPAM [Concomitant]
     Indication: ANXIETY
     Dosage: 5 MG, QD, PRN
     Route: 048

REACTIONS (2)
  - Drug screen negative [Unknown]
  - Drug screen positive [Unknown]
